FAERS Safety Report 11465902 (Version 2)
Quarter: 2017Q1

REPORT INFORMATION
  Report Type: Spontaneous
  Country: US (occurrence: US)
  Receive Date: 20150907
  Receipt Date: 20170120
  Transmission Date: 20170428
  Serious: No
  Sender: FDA-Public Use
  Company Number: US-TEVA-591921ACC

PATIENT
  Age: 19 Year
  Sex: Female
  Weight: 81.72 kg

DRUGS (3)
  1. PARAGARD T 380A [Suspect]
     Active Substance: COPPER
     Indication: CONTRACEPTION
     Route: 015
     Dates: end: 20150825
  2. MENTHOL. [Concomitant]
     Active Substance: MENTHOL
  3. IODINE. [Concomitant]
     Active Substance: IODINE

REACTIONS (3)
  - Vaginal haemorrhage [Unknown]
  - Pelvic pain [Unknown]
  - Device expulsion [Recovered/Resolved]

NARRATIVE: CASE EVENT DATE: 20150825
